FAERS Safety Report 22602944 (Version 2)
Quarter: 2023Q4

REPORT INFORMATION
  Report Type: Spontaneous
  Country: US (occurrence: US)
  Receive Date: 20230615
  Receipt Date: 20231229
  Transmission Date: 20240109
  Serious: Yes (Life-Threatening, Hospitalization, Other)
  Sender: FDA-Public Use
  Company Number: US-MACLEODS PHARMACEUTICALS US LTD-MAC2023041757

PATIENT

DRUGS (1)
  1. AMLODIPINE [Suspect]
     Active Substance: AMLODIPINE BESYLATE
     Indication: Product used for unknown indication
     Dosage: 300 MILLIGRAM
     Route: 048

REACTIONS (12)
  - Multiple organ dysfunction syndrome [Recovering/Resolving]
  - Haemodynamic instability [Recovering/Resolving]
  - Toxicity to various agents [Recovering/Resolving]
  - Hypoxia [Recovering/Resolving]
  - Septic shock [Recovering/Resolving]
  - Renal failure [Recovering/Resolving]
  - Acute respiratory distress syndrome [Recovering/Resolving]
  - Overdose [Recovering/Resolving]
  - Hypotension [Recovering/Resolving]
  - Vomiting [Recovering/Resolving]
  - Tachycardia [Recovering/Resolving]
  - Abdominal pain [Recovering/Resolving]
